FAERS Safety Report 6795311-9 (Version None)
Quarter: 2010Q2

REPORT INFORMATION
  Report Type: 
  Country: None (occurrence: None)
  Receive Date: 20100625
  Receipt Date: 20100615
  Transmission Date: 20101027
  Serious: Yes (Hospitalization)
  Sender: FDA-Public Use
  Company Number: FR-PFIZER INC-2010074596

PATIENT
  Age: 71 Year
  Sex: Female

DRUGS (15)
  1. XANAX [Suspect]
     Indication: ANXIETY
     Dosage: 0.50 MG, 1 TO 3 DF PER DAY
     Route: 048
     Dates: start: 20100210, end: 20100225
  2. AUGMENTIN '125' [Suspect]
     Indication: INFECTION
     Dosage: 1 G/125 MG 3 DF PER DAY
     Route: 048
     Dates: start: 20100223, end: 20100302
  3. CRESTOR [Suspect]
     Indication: HYPERCHOLESTEROLAEMIA
     Dosage: 5 MG, 1X/DAY
     Route: 048
     Dates: end: 20100224
  4. LEXOMIL [Suspect]
     Indication: ANXIETY
     Dosage: 0.25 DF TO 2 DF PER DAY
     Route: 048
     Dates: start: 20100210, end: 20100304
  5. DOLIPRANE [Suspect]
     Indication: PAIN
     Dosage: 1000 MG, 4X/DAY
     Route: 048
     Dates: start: 20100210, end: 20100304
  6. AMLOR [Concomitant]
     Dosage: UNK
  7. TAREG [Concomitant]
     Dosage: UNK
  8. ZOLPIDEM [Concomitant]
     Dosage: UNK
  9. DEROXAT [Concomitant]
     Dosage: UNK
  10. LOVENOX [Concomitant]
     Dosage: UNK
     Dates: start: 20100210
  11. ZOPHREN [Concomitant]
     Dosage: UNK
     Dates: start: 20100210, end: 20100224
  12. NEXIUM [Concomitant]
     Dosage: UNK
     Dates: start: 20100219
  13. TARDYFERON [Concomitant]
     Dosage: UNK
     Dates: start: 20100220
  14. FORLAX [Concomitant]
     Dosage: UNK
     Dates: start: 20100223
  15. DIFFU K [Concomitant]
     Dosage: UNK
     Dates: start: 20100225

REACTIONS (4)
  - FACE OEDEMA [None]
  - PRURITUS [None]
  - PYREXIA [None]
  - RASH MACULO-PAPULAR [None]
